FAERS Safety Report 5349862-4 (Version None)
Quarter: 2007Q2

REPORT INFORMATION
  Report Type: 
  Country: None (occurrence: None)
  Receive Date: 20070607
  Receipt Date: 20070601
  Transmission Date: 20071010
  Serious: Yes (Hospitalization)
  Sender: FDA-Public Use
  Company Number: DE-BOEHRINGER INGELHEIM PHARMACEUTICALS, INC.-2007-DE-03274DE

PATIENT
  Sex: Male
  Weight: 75 kg

DRUGS (5)
  1. AGGRENOX [Suspect]
     Indication: CEREBROVASCULAR ACCIDENT
     Route: 048
     Dates: start: 20060919, end: 20061004
  2. DELMUNO [Concomitant]
     Indication: HYPERTENSION
     Dosage: FELODIPIN 2,5 MG/5 MG, RAMIPRIL 2,5 MG/5 MG.  FELODIPIN 5 MG, RAMIPRIL 5 MG
     Route: 048
     Dates: start: 20000101
  3. PRAVASTATIN [Concomitant]
     Indication: HYPERCHOLESTEROLAEMIA
     Route: 048
     Dates: start: 20051001, end: 20060918
  4. LOCOL [Concomitant]
     Indication: HYPERCHOLESTEROLAEMIA
     Route: 048
     Dates: start: 20060919
  5. ASPIRIN [Concomitant]
     Indication: PLATELET AGGREGATION INHIBITION
     Route: 048
     Dates: start: 20040101, end: 20060919

REACTIONS (4)
  - ABDOMINAL PAIN UPPER [None]
  - ANOREXIA [None]
  - REFLUX OESOPHAGITIS [None]
  - WEIGHT DECREASED [None]
